FAERS Safety Report 8807765 (Version 1)
Quarter: 2012Q4

REPORT INFORMATION
  Report Type: Report from Study
  Country: TR (occurrence: TR)
  Receive Date: 20120925
  Receipt Date: 20120925
  Transmission Date: 20130627
  Serious: Yes (Hospitalization)
  Sender: FDA-Public Use
  Company Number: TR-ROCHE-1134880

PATIENT
  Age: 35 Year

DRUGS (3)
  1. XELODA [Suspect]
     Indication: BREAST CANCER
     Route: 065
     Dates: start: 201101, end: 201105
  2. XELODA [Suspect]
     Indication: METASTASES TO BONE
  3. XELODA [Suspect]
     Indication: METASTASES TO LIVER

REACTIONS (2)
  - Disease progression [Not Recovered/Not Resolved]
  - Wound [Not Recovered/Not Resolved]
